FAERS Safety Report 4777126-6 (Version None)
Quarter: 2005Q3

REPORT INFORMATION
  Report Type: 
  Country: None (occurrence: None)
  Receive Date: 20050922
  Receipt Date: 20050922
  Transmission Date: 20060218
  Serious: Yes (Disabling)
  Sender: FDA-Public Use
  Company Number: None

PATIENT
  Age: 46 Year
  Sex: Female
  Weight: 105 kg

DRUGS (20)
  1. ZOLEDRONIC ACID     4MG    NOVARTIS [Suspect]
     Indication: BREAST CANCER
     Dosage: 4MG   MONTHLY    IV BOLUS
     Route: 040
     Dates: start: 20020801, end: 20050701
  2. ZOLEDRONIC ACID     4MG    NOVARTIS [Suspect]
     Indication: METASTASES TO BONE
     Dosage: 4MG   MONTHLY    IV BOLUS
     Route: 040
     Dates: start: 20020801, end: 20050701
  3. PAMIDRONATE DISODIUM [Suspect]
     Indication: BREAST CANCER
     Dosage: 90MG   EVERY 3 MONTHS   IV BOLUS
     Route: 040
     Dates: start: 20010901, end: 20020801
  4. PAMIDRONATE DISODIUM [Suspect]
     Indication: METASTASIS
     Dosage: 90MG   EVERY 3 MONTHS   IV BOLUS
     Route: 040
     Dates: start: 20010901, end: 20020801
  5. PACLITAXEL [Concomitant]
  6. LETROZOLE [Concomitant]
  7. HORMONE THERAPY [Concomitant]
  8. FASLODEX [Concomitant]
  9. EXEMESTANE [Concomitant]
  10. DOCETAXEL [Concomitant]
  11. LUPRON [Concomitant]
  12. PANTOPRAZOLE [Concomitant]
  13. COLACE [Concomitant]
  14. SENNA [Concomitant]
  15. COUMADIN [Concomitant]
  16. HYDROCHLOROTHIAZIDE [Concomitant]
  17. LISINOPRIL [Concomitant]
  18. EFFEXOR [Concomitant]
  19. OXYCONTIN [Concomitant]
  20. PERCOCET [Concomitant]

REACTIONS (1)
  - BONE DISORDER [None]
